FAERS Safety Report 7639840-4 (Version None)
Quarter: 2011Q3

REPORT INFORMATION
  Report Type: 
  Country: None (occurrence: None)
  Receive Date: 20110727
  Receipt Date: 20110714
  Transmission Date: 20111222
  Serious: Yes (Other)
  Sender: FDA-Public Use
  Company Number: US-MYLANLABS-2011S1014780

PATIENT
  Age: 11 Year
  Sex: Male
  Weight: 35 kg

DRUGS (14)
  1. CLONAZEPAM [Concomitant]
     Route: 048
  2. CELECOXIB [Concomitant]
     Route: 048
  3. FOLIC ACID [Concomitant]
     Route: 048
  4. TIZANIDINE HCL [Concomitant]
     Indication: MUSCLE SPASTICITY
     Dosage: TIZANIDINE (AS THE HYDROCHLORIDE SALT)
     Route: 048
  5. HYDROCORTISONE [Concomitant]
     Indication: ADRENAL INSUFFICIENCY
     Route: 048
  6. LANSOPRAZOLE [Concomitant]
     Route: 048
  7. VALPROIC ACID [Concomitant]
     Route: 048
  8. LEVOSALBUTAMOL [Concomitant]
     Route: 065
  9. MONTELUKAST SODIUM [Concomitant]
     Indication: BRONCHIAL HYPERREACTIVITY
     Dosage: MONTELUKAST (AS THE SODIUM SALT)
     Route: 048
  10. BUDESONIDE [Concomitant]
     Route: 065
  11. SENNA [Concomitant]
     Route: 048
  12. AZITHROMYCIN [Suspect]
     Indication: ANTIINFLAMMATORY THERAPY
     Dosage: 200MG EVERY OTHER DAY (AZITHROMYCIN - AS THE DIHYDRATE)
     Route: 048
  13. L-CARNITINE [Concomitant]
     Route: 048
  14. ONDANSETRON [Concomitant]
     Dosage: TAKEN AS NEEDED
     Route: 048

REACTIONS (1)
  - COAGULOPATHY [None]
